FAERS Safety Report 19138560 (Version 2)
Quarter: 2021Q3

REPORT INFORMATION
  Report Type: Spontaneous
  Country: DE (occurrence: DE)
  Receive Date: 20210415
  Receipt Date: 20210820
  Transmission Date: 20211014
  Serious: Yes (Hospitalization)
  Sender: FDA-Public Use
  Company Number: DE-TEVA-2021-DE-1900056

PATIENT
  Age: 74 Year
  Sex: Male
  Weight: 75 kg

DRUGS (6)
  1. SPASMOLYT [Concomitant]
     Active Substance: TROSPIUM CHLORIDE
  2. FLUOROURACIL. [Suspect]
     Active Substance: FLUOROURACIL
     Dosage: LAST ON 25112020
     Route: 065
  3. OXALIPLATIN. [Suspect]
     Active Substance: OXALIPLATIN
     Dosage: LAST ON 25112020
     Route: 065
  4. PANKREATIN (SCHWEIN) [Concomitant]
  5. FOLINSAURE [Suspect]
     Active Substance: LEUCOVORIN
     Dosage: LAST ON 25112020
     Route: 065
  6. IRINOTECAN [Suspect]
     Active Substance: IRINOTECAN
     Dosage: LAST ON 25112020
     Route: 065

REACTIONS (7)
  - Asthenia [Recovering/Resolving]
  - Vomiting [Recovering/Resolving]
  - Nausea [Recovering/Resolving]
  - Hiccups [Recovering/Resolving]
  - Diarrhoea [Recovering/Resolving]
  - Pyrexia [Recovering/Resolving]
  - Chills [Recovering/Resolving]
